FAERS Safety Report 25381956 (Version 3)
Quarter: 2025Q3

REPORT INFORMATION
  Report Type: Report from Study
  Country: CH (occurrence: CH)
  Receive Date: 20250531
  Receipt Date: 20250709
  Transmission Date: 20251021
  Serious: Yes (Death)
  Sender: AMGEN
  Company Number: CH-AMGEN-CHENI2025104812

PATIENT
  Sex: Female

DRUGS (5)
  1. SOTORASIB [Suspect]
     Active Substance: SOTORASIB
     Indication: Non-small cell lung cancer
     Route: 065
     Dates: start: 20240409, end: 2024
  2. SOTORASIB [Suspect]
     Active Substance: SOTORASIB
     Route: 065
     Dates: start: 20240607, end: 2024
  3. SOTORASIB [Suspect]
     Active Substance: SOTORASIB
     Route: 065
     Dates: start: 20240912, end: 2024
  4. SOTORASIB [Suspect]
     Active Substance: SOTORASIB
     Route: 065
     Dates: start: 20241023
  5. SOTORASIB [Suspect]
     Active Substance: SOTORASIB
     Route: 065
     Dates: start: 20250117, end: 20250520

REACTIONS (1)
  - Non-small cell lung cancer [Fatal]
